FAERS Safety Report 21094692 (Version 6)
Quarter: 2023Q2

REPORT INFORMATION
  Report Type: Spontaneous
  Country: US (occurrence: US)
  Receive Date: 20220718
  Receipt Date: 20230509
  Transmission Date: 20230721
  Serious: Yes (Other)
  Sender: FDA-Public Use
  Company Number: US-BRISTOL-MYERS SQUIBB COMPANY-2022-067138

PATIENT
  Age: 89 Year
  Sex: Male

DRUGS (1)
  1. POMALYST [Suspect]
     Active Substance: POMALIDOMIDE
     Indication: Oedema
     Dosage: TAKE 1 CAPSULE BY MOUTH EVERY DAY ON DAYS 1-21 EVERY 28 DAYS
     Route: 048
     Dates: start: 20211217

REACTIONS (13)
  - Laboratory test abnormal [Unknown]
  - Decreased appetite [Unknown]
  - Pyrexia [Unknown]
  - Fatigue [Unknown]
  - Sleep disorder [Unknown]
  - Joint swelling [Unknown]
  - Intentional product use issue [Unknown]
  - Cough [Unknown]
  - Liver function test abnormal [Recovered/Resolved]
  - Cardiac disorder [Unknown]
  - Coccydynia [Unknown]
  - Diarrhoea [Unknown]
  - Constipation [Unknown]
